FAERS Safety Report 16583425 (Version 1)
Quarter: 2019Q3

REPORT INFORMATION
  Report Type: Spontaneous
  Country: US (occurrence: US)
  Receive Date: 20190716
  Receipt Date: 20190716
  Transmission Date: 20191004
  Serious: No
  Sender: FDA-Public Use
  Company Number: None

PATIENT
  Age: 16 Year
  Sex: Male
  Weight: 63.45 kg

DRUGS (1)
  1. PANZYGA [Suspect]
     Active Substance: HUMAN IMMUNOGLOBULIN G
     Indication: ENCEPHALOPATHY
     Dosage: ?          OTHER FREQUENCY:2 DAYS EVERY 3 WKS;?
     Route: 042

REACTIONS (4)
  - Infusion related reaction [None]
  - Dyspnoea [None]
  - Dysphagia [None]
  - Panic attack [None]

NARRATIVE: CASE EVENT DATE: 20190711
